FAERS Safety Report 5043436-0 (Version None)
Quarter: 2006Q2

REPORT INFORMATION
  Report Type: 
  Country: None (occurrence: None)
  Receive Date: 20060629
  Receipt Date: 20060621
  Transmission Date: 20061013
  Serious: Yes (Hospitalization)
  Sender: FDA-Public Use
  Company Number: 163-C5013-06030009

PATIENT
  Age: 80 Year
  Sex: Female
  Weight: 79.3795 kg

DRUGS (24)
  1. REVLIMID [Suspect]
     Indication: MULTIPLE MYELOMA
     Dosage: SEE IMAGE
     Route: 048
     Dates: start: 20060207, end: 20060225
  2. REVLIMID [Suspect]
     Indication: MULTIPLE MYELOMA
     Dosage: SEE IMAGE
     Route: 048
     Dates: start: 20060316
  3. DEXAMETHASONE [Suspect]
     Indication: MULTIPLE MYELOMA
     Dosage: 40 MG, DAILY ON DAYS 1-4, 9-12, 17-20, ORAL
     Route: 048
     Dates: start: 20060207, end: 20060225
  4. ZOMETA [Concomitant]
  5. SYNTHROID [Concomitant]
  6. DITROPAN [Concomitant]
  7. PROZAC [Concomitant]
  8. ASCORBIC ACID [Concomitant]
  9. CYANOCOBALAMIN [Concomitant]
  10. CENTRUM (CENTRUM) [Concomitant]
  11. TURMERIC (TURMERIC) [Concomitant]
  12. VIVELLE [Concomitant]
  13. CLARINEX [Concomitant]
  14. GLUCOSAMINE/ CHONDROITIN (GLUCOSAMINE W/CHONDROITIN SULFATES) [Concomitant]
  15. HYDROMORPHONE HCL [Concomitant]
  16. TRAMADOL HCL [Concomitant]
  17. HYDROCODONE BITARTRATE [Concomitant]
  18. IBUPROFEN [Concomitant]
  19. CELEBREX [Concomitant]
  20. DARVOCET [Concomitant]
  21. ALEVE [Concomitant]
  22. ACETAMINOPHEN [Concomitant]
  23. PRILOSEC [Concomitant]
  24. PROCRIT [Concomitant]

REACTIONS (22)
  - ACTIVITIES OF DAILY LIVING IMPAIRED [None]
  - AGITATION [None]
  - ANAEMIA [None]
  - ANOREXIA [None]
  - ASTHENIA [None]
  - BLOOD CREATINE INCREASED [None]
  - BLOOD THYROID STIMULATING HORMONE DECREASED [None]
  - BLOOD UREA INCREASED [None]
  - DEHYDRATION [None]
  - DYSPHAGIA [None]
  - ELECTROLYTE IMBALANCE [None]
  - HAEMOGLOBIN DECREASED [None]
  - HERPES ZOSTER [None]
  - HIATUS HERNIA [None]
  - HYPOCALCAEMIA [None]
  - HYPOKALAEMIA [None]
  - HYPONATRAEMIA [None]
  - NAUSEA [None]
  - PNEUMONIA [None]
  - RASH [None]
  - RESTLESSNESS [None]
  - URINARY INCONTINENCE [None]
